FAERS Safety Report 20774019 (Version 1)
Quarter: 2022Q2

REPORT INFORMATION
  Report Type: Spontaneous
  Country: FR (occurrence: None)
  Receive Date: 20220502
  Receipt Date: 20220502
  Transmission Date: 20220721
  Serious: Yes (Other)
  Sender: FDA-Public Use
  Company Number: FR-Fresenius Kabi-FK202204890

PATIENT
  Age: 60 Year
  Sex: Male

DRUGS (4)
  1. PROPOFOL [Interacting]
     Active Substance: PROPOFOL
     Indication: General anaesthesia
     Dosage: UNK
     Route: 065
  2. LEVODOPA [Interacting]
     Active Substance: LEVODOPA
     Indication: Parkinson^s disease
     Dosage: UNK
     Route: 065
  3. ENTACAPONE [Interacting]
     Active Substance: ENTACAPONE
     Indication: Parkinson^s disease
     Dosage: UNK
     Route: 065
  4. ROPINIROLE [Interacting]
     Active Substance: ROPINIROLE
     Indication: Parkinson^s disease
     Dosage: UNK
     Route: 065

REACTIONS (3)
  - Acute psychosis [Recovered/Resolved]
  - Drug interaction [Recovered/Resolved]
  - Neurotransmitter level altered [Recovered/Resolved]
